FAERS Safety Report 17600039 (Version 2)
Quarter: 2021Q3

REPORT INFORMATION
  Report Type: Spontaneous
  Country: JP (occurrence: JP)
  Receive Date: 20200330
  Receipt Date: 20210909
  Transmission Date: 20211014
  Serious: Yes (Other)
  Sender: FDA-Public Use
  Company Number: JP-SHIRE-JP202011378AA

PATIENT
  Age: 15 Month
  Sex: Male

DRUGS (2)
  1. VPRIV [Suspect]
     Active Substance: VELAGLUCERASE ALFA
     Dosage: 60 INTERNATIONAL UNIT, Q2WEEKS
     Route: 042
     Dates: start: 201908
  2. VPRIV [Suspect]
     Active Substance: VELAGLUCERASE ALFA
     Indication: GAUCHER^S DISEASE TYPE II
     Dosage: UNK
     Route: 065

REACTIONS (4)
  - Laryngospasm [Unknown]
  - Hepatic mass [Unknown]
  - Cyanosis [Recovered/Resolved]
  - Respiratory arrest [Unknown]
